FAERS Safety Report 8444498-0 (Version None)
Quarter: 2012Q2

REPORT INFORMATION
  Report Type: 
  Country: None (occurrence: None)
  Receive Date: 20120618
  Receipt Date: 20120608
  Transmission Date: 20120825
  Serious: Yes (Hospitalization)
  Sender: FDA-Public Use
  Company Number: BR-ASTRAZENECA-2012SE38588

PATIENT
  Age: 58 Year
  Sex: Male
  Weight: 74 kg

DRUGS (5)
  1. CARVEDILOL [Concomitant]
     Indication: HYPERTENSION
  2. ALDACTONE [Concomitant]
     Indication: HYPERTENSION
     Route: 048
     Dates: start: 20070101
  3. CRESTOR [Suspect]
     Indication: BLOOD CHOLESTEROL INCREASED
     Route: 048
     Dates: start: 20070101
  4. FUROSEMIDE [Concomitant]
     Indication: HYPERTENSION
  5. ATACAND [Suspect]
     Indication: HYPERTENSION
     Route: 048
     Dates: start: 20070101

REACTIONS (4)
  - LEFT VENTRICULAR DYSFUNCTION [None]
  - HYPOTHYROIDISM [None]
  - GASTRITIS [None]
  - ANXIETY [None]
